FAERS Safety Report 8349557-9 (Version None)
Quarter: 2012Q2

REPORT INFORMATION
  Report Type: 
  Country: None (occurrence: None)
  Receive Date: 20120510
  Receipt Date: 20120501
  Transmission Date: 20120825
  Serious: Yes (Hospitalization)
  Sender: FDA-Public Use
  Company Number: US-BAYER-2012-003335

PATIENT
  Age: 36 Year
  Sex: Female

DRUGS (4)
  1. LEVOTHYROXINE SODIUM [Concomitant]
     Dosage: UNK
     Dates: start: 20100917, end: 20101110
  2. ADDERALL 5 [Concomitant]
  3. YAZ [Suspect]
     Dosage: UNK
     Route: 048
     Dates: start: 20100101, end: 20100101
  4. METFORMIN HCL [Concomitant]
     Dosage: UNK
     Dates: start: 20101021, end: 20101110

REACTIONS (3)
  - PULMONARY EMBOLISM [None]
  - PAIN [None]
  - DEEP VEIN THROMBOSIS [None]
